FAERS Safety Report 11699164 (Version 2)
Quarter: 2015Q4

REPORT INFORMATION
  Report Type: Spontaneous
  Country: IE (occurrence: IE)
  Receive Date: 20151104
  Receipt Date: 20151104
  Transmission Date: 20160304
  Serious: No
  Sender: FDA-Public Use
  Company Number: IE-ANTARES PHARMA, INC.-2015-LIT-ME-0091

PATIENT
  Age: 8 Year
  Sex: Female

DRUGS (3)
  1. METHOTREXATE [Suspect]
     Active Substance: METHOTREXATE
     Indication: AUTOIMMUNE DISORDER
  2. CYCLOSPORIN [Concomitant]
     Active Substance: CYCLOSPORINE
  3. PREDNISOLONE. [Concomitant]
     Active Substance: PREDNISOLONE

REACTIONS (1)
  - Off label use [None]
